FAERS Safety Report 7436109-8 (Version None)
Quarter: 2011Q2

REPORT INFORMATION
  Report Type: 
  Country: None (occurrence: None)
  Receive Date: 20110425
  Receipt Date: 20110415
  Transmission Date: 20111010
  Serious: Yes (Hospitalization)
  Sender: FDA-Public Use
  Company Number: BR-MEDIMMUNE-MEDI-0013126

PATIENT
  Sex: Male
  Weight: 9.125 kg

DRUGS (2)
  1. CAPTOPRIL [Concomitant]
     Route: 048
     Dates: start: 20091208
  2. SYNAGIS [Suspect]
     Dates: start: 20100428, end: 20100802

REACTIONS (2)
  - PNEUMONIA [None]
  - WHEEZING [None]
